FAERS Safety Report 12636477 (Version 2)
Quarter: 2016Q3

REPORT INFORMATION
  Report Type: Report from Study
  Country: NL (occurrence: NL)
  Receive Date: 20160809
  Receipt Date: 20160811
  Transmission Date: 20161109
  Serious: Yes (Hospitalization, Other)
  Sender: FDA-Public Use
  Company Number: NL-AMGEN-NLDSL2016101807

PATIENT
  Age: 78 Year
  Sex: Male

DRUGS (1)
  1. NEULASTA [Suspect]
     Active Substance: PEGFILGRASTIM
     Indication: NEUTROPENIA
     Dosage: 0.6 ML, Q2WK (10 MG/ML WWSP 0.6ML, 1.00 X PER 2 WEKEN)
     Route: 058

REACTIONS (4)
  - Intentional product misuse [Unknown]
  - Pyrexia [Unknown]
  - Hospitalisation [Unknown]
  - White blood cell count abnormal [Unknown]

NARRATIVE: CASE EVENT DATE: 2016
